FAERS Safety Report 7753690-X (Version None)
Quarter: 2011Q3

REPORT INFORMATION
  Report Type: 
  Country: None (occurrence: None)
  Receive Date: 20110915
  Receipt Date: 20110905
  Transmission Date: 20111222
  Serious: Yes (Death)
  Sender: FDA-Public Use
  Company Number: FR-PFIZER INC-2011202897

PATIENT
  Age: 68 Year
  Sex: Female

DRUGS (2)
  1. EXEMESTANE [Suspect]
     Indication: BREAST CANCER
     Dosage: 25 MG, 1X/DAY
     Route: 048
     Dates: start: 20060712, end: 20071201
  2. QUESTRAN [Concomitant]
     Dosage: UNK
     Route: 048
     Dates: start: 20000101

REACTIONS (1)
  - INFECTIOUS PERITONITIS [None]
